FAERS Safety Report 6594281-6 (Version None)
Quarter: 2010Q1

REPORT INFORMATION
  Report Type: 
  Country: None (occurrence: None)
  Receive Date: 20100222
  Receipt Date: 20100216
  Transmission Date: 20100710
  Serious: Yes (Other)
  Sender: FDA-Public Use
  Company Number: US-MERCK-1002USA02355

PATIENT
  Age: 16 Year
  Sex: Female

DRUGS (4)
  1. SINGULAIR [Suspect]
     Route: 048
     Dates: start: 20080201
  2. FLONASE [Concomitant]
     Route: 065
  3. ADVAIR DISKUS 100/50 [Concomitant]
     Route: 065
  4. CORTICOSTEROIDS (UNSPECIFIED) [Concomitant]
     Route: 048

REACTIONS (1)
  - SUICIDAL IDEATION [None]
